FAERS Safety Report 17083431 (Version 1)
Quarter: 2019Q4

REPORT INFORMATION
  Report Type: Spontaneous
  Country: US (occurrence: US)
  Receive Date: 20191127
  Receipt Date: 20191127
  Transmission Date: 20200122
  Serious: No
  Sender: FDA-Public Use
  Company Number: US-SA-2019SA325211

PATIENT
  Age: 51 Year
  Sex: Female
  Weight: 65.31 kg

DRUGS (21)
  1. FABRAZYME [Suspect]
     Active Substance: AGALSIDASE BETA
     Indication: LIPIDOSIS
  2. FLUBLOK QUADRIVALENT [Concomitant]
     Dosage: 1 DOSE AS DIRECTED
     Route: 030
     Dates: start: 20191014
  3. LIDOCAINE. [Concomitant]
     Active Substance: LIDOCAINE
     Dosage: 2.5 %, PRN
     Route: 061
     Dates: start: 20190727
  4. CYCLOBENZAPRINE HCL [Concomitant]
     Active Substance: CYCLOBENZAPRINE HYDROCHLORIDE
     Dosage: 1 DF, HS
     Route: 048
     Dates: start: 20190223
  5. ZOFRAN [Concomitant]
     Active Substance: ONDANSETRON HYDROCHLORIDE
     Dosage: 1 DF, UNK
     Route: 065
     Dates: start: 20180621
  6. PROCHLORPERAZINE. [Concomitant]
     Active Substance: PROCHLORPERAZINE
     Dosage: 1 DF, UNK
     Route: 065
     Dates: start: 20190913
  7. MAGNESIUM [Concomitant]
     Active Substance: MAGNESIUM
     Dosage: 1 DF, QD
     Route: 048
     Dates: start: 20190710
  8. PROCARDIA [Concomitant]
     Active Substance: NIFEDIPINE
     Dosage: 1 DF, QD
     Route: 048
     Dates: start: 20180724
  9. CALCITRIOL. [Concomitant]
     Active Substance: CALCITRIOL
     Dosage: 1 DF, QD
     Route: 048
     Dates: start: 20180723
  10. NORMAL SALINE [Concomitant]
     Active Substance: SODIUM CHLORIDE
     Dosage: 0.9 %, UNK
     Route: 042
     Dates: start: 20190727
  11. EPINEPHRINE. [Concomitant]
     Active Substance: EPINEPHRINE
     Indication: ANAPHYLACTIC REACTION
     Dosage: 0.3 MG, PRN
     Route: 030
     Dates: start: 20190727
  12. PROGESTERONE. [Concomitant]
     Active Substance: PROGESTERONE
     Dosage: 1 DF, QD
     Route: 048
     Dates: start: 20180501
  13. HEPARIN [Concomitant]
     Active Substance: HEPARIN SODIUM
     Dosage: 100 UNITS/ ML
     Route: 042
     Dates: start: 20190727
  14. VITAMIN D3 [Concomitant]
     Active Substance: CHOLECALCIFEROL
     Dosage: 1 CAPSULE, QD
     Route: 048
     Dates: start: 20190710
  15. FUROSEMIDE. [Concomitant]
     Active Substance: FUROSEMIDE
     Dosage: 1 DF, QD
     Route: 048
     Dates: start: 20190228
  16. FABRAZYME [Suspect]
     Active Substance: AGALSIDASE BETA
     Indication: FABRY^S DISEASE
     Dosage: 0.99 MG/KG, QOW
     Route: 042
     Dates: start: 20070323
  17. STERILE WATER [Concomitant]
     Active Substance: WATER
     Dosage: 13 ML, UNK
     Route: 042
     Dates: start: 20190727
  18. SODIUM BICARBONATE. [Concomitant]
     Active Substance: SODIUM BICARBONATE
     Dosage: 1 DF, QD
     Route: 048
     Dates: start: 20181201
  19. TACROLIMUS. [Concomitant]
     Active Substance: TACROLIMUS
     Dosage: 3 DF, BID
     Route: 048
     Dates: start: 20181201
  20. ESTROGEL [Concomitant]
     Active Substance: ESTRADIOL
     Dosage: 1 DF, QD
     Route: 061
     Dates: start: 20181127
  21. SODIUM CHLORIDE. [Concomitant]
     Active Substance: SODIUM CHLORIDE
     Dosage: 0.9 %, UNK
     Route: 042
     Dates: start: 20190727

REACTIONS (2)
  - Paranasal sinus discomfort [Unknown]
  - Headache [Unknown]
